FAERS Safety Report 4968503-9 (Version None)
Quarter: 2006Q2

REPORT INFORMATION
  Report Type: 
  Country: None (occurrence: None)
  Receive Date: 20060410
  Receipt Date: 20051101
  Transmission Date: 20061013
  Serious: Yes (Hospitalization, Other)
  Sender: FDA-Public Use
  Company Number: ZA-MERCK-0511ZAF00007

PATIENT
  Sex: Female
  Weight: 65 kg

DRUGS (2)
  1. VIOXX [Suspect]
     Indication: OSTEOARTHRITIS
     Route: 048
     Dates: start: 20030710, end: 20041013
  2. ASPIRIN CALCIUM [Concomitant]
     Route: 048

REACTIONS (2)
  - EMOTIONAL DISTRESS [None]
  - MYOCARDIAL INFARCTION [None]
